FAERS Safety Report 7130768-5 (Version None)
Quarter: 2010Q4

REPORT INFORMATION
  Report Type: 
  Country: None (occurrence: None)
  Receive Date: 20101201
  Receipt Date: 20101117
  Transmission Date: 20110411
  Serious: Yes (Hospitalization, Other)
  Sender: FDA-Public Use
  Company Number: PHHY2010MX34459

PATIENT
  Sex: Female
  Weight: 87 kg

DRUGS (4)
  1. DIOVAN [Suspect]
     Indication: HYPERTENSION
     Dosage: 2 DF, DAILY (160 MG)
     Route: 048
     Dates: start: 20090901
  2. DIOVAN [Suspect]
     Dosage: 1 DF, (80 MG DAILY)
     Dates: start: 20100525
  3. METOPROLOL [Concomitant]
     Indication: TACHYCARDIA
     Dosage: 0.5 DF, DAILY
     Dates: start: 20100430
  4. CHEMOTHERAPEUTICS NOS [Concomitant]
     Dosage: UNK
     Dates: start: 20100503

REACTIONS (10)
  - APPENDICECTOMY [None]
  - ASCITES [None]
  - BLOOD PRESSURE DECREASED [None]
  - CATHETERISATION VENOUS [None]
  - COLON CANCER [None]
  - HYSTERECTOMY [None]
  - NEOPLASM MALIGNANT [None]
  - OOPHORECTOMY [None]
  - UTERINE LEIOMYOMA [None]
  - VAGINAL HAEMORRHAGE [None]
